FAERS Safety Report 8946962 (Version 2)
Quarter: 2013Q1

REPORT INFORMATION
  Report Type: Spontaneous
  Country: US (occurrence: US)
  Receive Date: 20121205
  Receipt Date: 20130109
  Transmission Date: 20140127
  Serious: Yes (Hospitalization, Other)
  Sender: FDA-Public Use
  Company Number: US-PFIZER INC-2012301825

PATIENT
  Age: 45 Year
  Sex: Female
  Weight: 56.24 kg

DRUGS (2)
  1. PREMPRO [Suspect]
     Indication: HORMONE REPLACEMENT THERAPY
     Dosage: ESTROGENS CONJUGATED 0.625MG / MEDROXYPROGESTERONE ACETATE 2.5MG, DAILY
  2. FENTANYL [Suspect]
     Indication: PAIN
     Dosage: 50 MG, UNK

REACTIONS (8)
  - Thoracic vertebral fracture [Unknown]
  - Spinal fracture [Unknown]
  - Rib fracture [Unknown]
  - Cartilage injury [Unknown]
  - Lyme disease [Not Recovered/Not Resolved]
  - Pain [Not Recovered/Not Resolved]
  - Injury [Unknown]
  - Drug effect incomplete [Unknown]
